FAERS Safety Report 18182875 (Version 1)
Quarter: 2020Q3

REPORT INFORMATION
  Report Type: Spontaneous
  Country: US (occurrence: US)
  Receive Date: 20200822
  Receipt Date: 20200822
  Transmission Date: 20201103
  Serious: Yes (Other)
  Sender: FDA-Public Use
  Company Number: US-ALLERGAN-2031753US

PATIENT

DRUGS (2)
  1. BOTOX COSMETIC [Suspect]
     Active Substance: ONABOTULINUMTOXINA
     Indication: EXPOSURE DURING PREGNANCY
     Dosage: UNK, SINGLE
     Route: 064
     Dates: start: 20190326, end: 20190326
  2. BOTOX COSMETIC [Suspect]
     Active Substance: ONABOTULINUMTOXINA
     Dosage: UNK, SINGLE
     Route: 064
     Dates: start: 20190326, end: 20190326

REACTIONS (2)
  - Premature baby [Unknown]
  - Hypotonia [Unknown]
